FAERS Safety Report 9351808 (Version 1)
Quarter: 2013Q2

REPORT INFORMATION
  Report Type: Spontaneous
  Country: US (occurrence: US)
  Receive Date: 20130617
  Receipt Date: 20130617
  Transmission Date: 20140414
  Serious: Yes (Other)
  Sender: FDA-Public Use
  Company Number: US-GLAXOSMITHKLINE-A0954164A

PATIENT
  Age: 55 Year
  Sex: Female
  Weight: 62.65 kg

DRUGS (9)
  1. BENLYSTA [Suspect]
     Indication: SYSTEMIC LUPUS ERYTHEMATOSUS
     Route: 042
     Dates: start: 20110923
  2. PLAQUENIL [Concomitant]
     Dates: start: 19960101
  3. WELLBUTRIN [Concomitant]
     Dosage: 150MG TWICE PER DAY
     Route: 048
  4. PROZAC [Concomitant]
     Dosage: 20MG PER DAY
     Route: 048
  5. PREDNISONE [Concomitant]
     Dosage: 4MG PER DAY
     Route: 048
  6. SYNTHROID [Concomitant]
     Dates: start: 19830101
  7. PRENATAL VITAMIN [Concomitant]
  8. PERCOCET [Concomitant]
  9. FOLIC ACID [Concomitant]

REACTIONS (8)
  - Self-injurious ideation [Recovered/Resolved]
  - Affect lability [Recovered/Resolved]
  - Depressed mood [Recovered/Resolved]
  - Abdominal discomfort [Recovered/Resolved]
  - Diarrhoea [Recovered/Resolved]
  - Arthropod sting [Unknown]
  - Swelling [Unknown]
  - Pain [Unknown]
